FAERS Safety Report 6823445-9 (Version None)
Quarter: 2010Q3

REPORT INFORMATION
  Report Type: 
  Country: None (occurrence: None)
  Receive Date: 20100708
  Receipt Date: 20100628
  Transmission Date: 20110219
  Serious: Yes (Disabling)
  Sender: FDA-Public Use
  Company Number: FR-ABBOTT-10P-056-0654264-00

PATIENT
  Age: 47 Year
  Sex: Male

DRUGS (4)
  1. NORVIR [Suspect]
     Indication: HIV INFECTION
     Route: 048
     Dates: start: 20040218
  2. RALTEGRAVIR [Suspect]
     Indication: HIV INFECTION
     Route: 048
     Dates: start: 20090114
  3. DARUNAVIR [Suspect]
     Indication: HIV INFECTION
     Route: 048
     Dates: start: 20040218
  4. VALACYCLOVIR [Concomitant]
     Indication: HERPES SIMPLEX
     Route: 048
     Dates: start: 20031013

REACTIONS (3)
  - ACETABULUM FRACTURE [None]
  - OSTEONECROSIS [None]
  - ROAD TRAFFIC ACCIDENT [None]
